FAERS Safety Report 6604187-1 (Version None)
Quarter: 2010Q1

REPORT INFORMATION
  Report Type: 
  Country: None (occurrence: None)
  Receive Date: 20100226
  Receipt Date: 20090714
  Transmission Date: 20100710
  Serious: No
  Sender: FDA-Public Use
  Company Number: A0793528A

PATIENT
  Age: 40 Year
  Sex: Male

DRUGS (7)
  1. LAMICTAL CD [Suspect]
     Indication: BIPOLAR DISORDER
     Dosage: 200MG PER DAY
     Route: 048
     Dates: start: 20080101, end: 20080101
  2. LAMICTAL CD [Suspect]
     Dosage: 200MG PER DAY
     Route: 048
     Dates: start: 20090601
  3. PARNATE [Concomitant]
  4. TOPAMAX [Concomitant]
  5. SEROQUEL [Concomitant]
  6. CLONOPIN [Concomitant]
  7. REMERON [Concomitant]

REACTIONS (2)
  - DRUG INEFFECTIVE [None]
  - HEADACHE [None]
